FAERS Safety Report 13282055 (Version 1)
Quarter: 2017Q1

REPORT INFORMATION
  Report Type: Spontaneous
  Country: US (occurrence: US)
  Receive Date: 20170301
  Receipt Date: 20170301
  Transmission Date: 20170428
  Serious: No
  Sender: FDA-Public Use
  Company Number: US-AMAG PHARMACEUTICALS, INC.-AMAG201600694

PATIENT

DRUGS (6)
  1. INSULIN-HUMALOG [Concomitant]
     Dosage: UNK
  2. ZYRTEC [Concomitant]
     Active Substance: CETIRIZINE HYDROCHLORIDE
     Indication: HYPERSENSITIVITY
     Dosage: UNK
  3. TYLENOL [Concomitant]
     Active Substance: ACETAMINOPHEN
     Dosage: UNK
  4. MAKENA [Suspect]
     Active Substance: HYDROXYPROGESTERONE CAPROATE
     Indication: PREMATURE DELIVERY
     Dosage: 250 MG, WEEKLY
     Route: 030
     Dates: start: 20160422
  5. TUMS [Concomitant]
     Active Substance: CALCIUM CARBONATE
     Dosage: UNK
  6. HUMULIN L [Concomitant]
     Active Substance: INSULIN HUMAN
     Dosage: UNK

REACTIONS (4)
  - Vomiting [Recovered/Resolved]
  - Feeling abnormal [Recovered/Resolved]
  - Vomiting in pregnancy [Recovered/Resolved]
  - Nausea [Recovered/Resolved]

NARRATIVE: CASE EVENT DATE: 20160423
